FAERS Safety Report 14657359 (Version 1)
Quarter: 2018Q1

REPORT INFORMATION
  Report Type: Spontaneous
  Country: GR (occurrence: GR)
  Receive Date: 20180319
  Receipt Date: 20180319
  Transmission Date: 20180509
  Serious: Yes (Other)
  Sender: FDA-Public Use
  Company Number: GR-ASTRAZENECA-2018SE32972

PATIENT
  Age: 54 Year
  Sex: Male
  Weight: 92 kg

DRUGS (3)
  1. LIPITOR [Suspect]
     Active Substance: ATORVASTATIN CALCIUM
     Route: 065
     Dates: start: 201208, end: 201208
  2. ZARATOR [Suspect]
     Active Substance: ATORVASTATIN CALCIUM
     Route: 065
     Dates: start: 201207, end: 201207
  3. CRESTOR [Suspect]
     Active Substance: ROSUVASTATIN CALCIUM
     Route: 048
     Dates: start: 201206, end: 201206

REACTIONS (2)
  - Motor dysfunction [Unknown]
  - Myalgia [Unknown]

NARRATIVE: CASE EVENT DATE: 201206
